FAERS Safety Report 7964517-5 (Version None)
Quarter: 2011Q4

REPORT INFORMATION
  Report Type: 
  Country: None (occurrence: None)
  Receive Date: 20111208
  Receipt Date: 20111128
  Transmission Date: 20120403
  Serious: Yes (Hospitalization)
  Sender: FDA-Public Use
  Company Number: PHHY2011FR105006

PATIENT
  Age: 66 Year
  Sex: Female

DRUGS (3)
  1. TEGRETOL [Suspect]
     Indication: NEURALGIA
     Dosage: 200 MG, DAILY
     Dates: start: 20110518
  2. TEGRETOL [Suspect]
     Dosage: 200 MG, TWICE DAILY
  3. TEGRETOL [Suspect]
     Dosage: 200 MG, THREE TIMES DAILY
     Dates: end: 20110601

REACTIONS (7)
  - THROMBOCYTOPENIA [None]
  - NEUTROPENIA [None]
  - THROMBOCYTOPENIC PURPURA [None]
  - LEUKOPENIA [None]
  - PYREXIA [None]
  - MYALGIA [None]
  - PETECHIAE [None]
